FAERS Safety Report 11261199 (Version 2)
Quarter: 2015Q3

REPORT INFORMATION
  Report Type: Spontaneous
  Country: US (occurrence: US)
  Receive Date: 20150710
  Receipt Date: 20150714
  Transmission Date: 20151125
  Serious: Yes (Hospitalization)
  Sender: FDA-Public Use
  Company Number: US-UNITED THERAPEUTICS-UNT-2015-006442

PATIENT
  Age: 63 Year
  Sex: Female
  Weight: 93.42 kg

DRUGS (4)
  1. OPSUMIT [Suspect]
     Active Substance: MACITENTAN
     Indication: PRODUCT USED FOR UNKNOWN INDICATION
  2. TYVASO [Suspect]
     Active Substance: TREPROSTINIL
     Indication: PULMONARY ARTERIAL HYPERTENSION
     Dosage: 18-54 MICROGRAMS, QID
     Dates: start: 20150522, end: 20150629
  3. COUMADIN [Concomitant]
     Active Substance: WARFARIN SODIUM
     Indication: PRODUCT USED FOR UNKNOWN INDICATION
  4. TYVASO [Suspect]
     Active Substance: TREPROSTINIL
     Dosage: 18-54 MICROGRAMS, QID

REACTIONS (19)
  - Mouth ulceration [Not Recovered/Not Resolved]
  - Cellulitis [Unknown]
  - Therapy cessation [Unknown]
  - Fall [Unknown]
  - Contusion [Unknown]
  - Syncope [Unknown]
  - Herpes zoster [Unknown]
  - Treatment noncompliance [Unknown]
  - Insomnia [Unknown]
  - Fluid retention [Unknown]
  - Chest pain [Unknown]
  - Headache [Unknown]
  - Lip ulceration [Unknown]
  - Oropharyngeal pain [Unknown]
  - Blister [Unknown]
  - Fluid overload [Unknown]
  - Decreased appetite [Unknown]
  - Nausea [Unknown]
  - Oedema peripheral [Unknown]

NARRATIVE: CASE EVENT DATE: 201505
